FAERS Safety Report 8169987-8 (Version None)
Quarter: 2012Q1

REPORT INFORMATION
  Report Type: 
  Country: None (occurrence: None)
  Receive Date: 20120228
  Receipt Date: 20120216
  Transmission Date: 20120608
  Serious: Yes (Hospitalization, Other)
  Sender: FDA-Public Use
  Company Number: DE-ELI_LILLY_AND_COMPANY-DE201112004137

PATIENT
  Age: 68 Year
  Sex: Male

DRUGS (10)
  1. LEVEMIR [Concomitant]
     Dosage: 20 IU, EACH MORNING
  2. METOPROLOL TARTRATE [Concomitant]
     Dosage: UNK, UNKNOWN
  3. HUMALOG [Suspect]
     Indication: DIABETES MELLITUS
     Dosage: 30 IU, BID
     Route: 058
     Dates: start: 19960101
  4. ASPIRIN [Concomitant]
     Dosage: 100 MG, UNKNOWN
  5. LEVEMIR [Concomitant]
     Dosage: 17 IU, EACH EVENING
  6. TELMISARTAN [Concomitant]
     Dosage: 40 MG, UNKNOWN
  7. SIMVASTATIN [Concomitant]
     Dosage: UNK, UNKNOWN
  8. RASILEZ [Concomitant]
     Dosage: 150 MG, UNKNOWN
  9. AMLODIPINE [Concomitant]
     Dosage: 10 MG, UNKNOWN
  10. TORSEMIDE [Concomitant]
     Dosage: 10 MG, UNKNOWN

REACTIONS (8)
  - HYPOGLYCAEMIC UNCONSCIOUSNESS [None]
  - DRUG EFFECT PROLONGED [None]
  - CORONARY ARTERY DISEASE [None]
  - AORTIC ARTERIOSCLEROSIS [None]
  - HYPOCALCAEMIA [None]
  - HYPERTENSIVE CRISIS [None]
  - DIABETIC FOOT [None]
  - BUNDLE BRANCH BLOCK LEFT [None]
